FAERS Safety Report 14586938 (Version 1)
Quarter: 2018Q1

REPORT INFORMATION
  Report Type: Spontaneous
  Country: US (occurrence: US)
  Receive Date: 20180228
  Receipt Date: 20180228
  Transmission Date: 20180509
  Serious: Yes (Hospitalization)
  Sender: FDA-Public Use
  Company Number: None

PATIENT
  Age: 73 Year
  Sex: Male

DRUGS (1)
  1. OXYCODONE [Suspect]
     Active Substance: OXYCODONE
     Indication: PAIN
     Dosage: 5-10 MG PRN PO
     Route: 048
     Dates: start: 20180207

REACTIONS (2)
  - Constipation [None]
  - Treatment noncompliance [None]

NARRATIVE: CASE EVENT DATE: 20180211
